FAERS Safety Report 10019020 (Version 1)
Quarter: 2014Q1

REPORT INFORMATION
  Report Type: Spontaneous
  Country: US (occurrence: US)
  Receive Date: 20140318
  Receipt Date: 20140318
  Transmission Date: 20141002
  Serious: No
  Sender: FDA-Public Use
  Company Number: US-009507513-1403USA007341

PATIENT
  Sex: Male

DRUGS (2)
  1. NOXAFIL [Suspect]
     Indication: CANDIDA INFECTION
     Dosage: STRENGTH-200MG/5ML 1STANDARD DOSE OF 105
     Route: 048
  2. NOXAFIL [Suspect]
     Dosage: STRENGTH-200MG/5ML 1STANDARD DOSE OF 105
     Route: 048

REACTIONS (2)
  - Drug ineffective [Not Recovered/Not Resolved]
  - Product quality issue [Unknown]
